FAERS Safety Report 4725712-1 (Version None)
Quarter: 2005Q3

REPORT INFORMATION
  Report Type: 
  Country: None (occurrence: None)
  Receive Date: 20050722
  Receipt Date: 20050722
  Transmission Date: 20060218
  Serious: Yes (Hospitalization)
  Sender: FDA-Public Use
  Company Number: None

PATIENT
  Age: 61 Year
  Sex: Male

DRUGS (1)
  1. HYDROMORPHONE [Suspect]
     Dosage: 8MG QD ORAL
     Route: 048

REACTIONS (6)
  - HYPOTENSION [None]
  - INCOHERENT [None]
  - INCORRECT DOSE ADMINISTERED [None]
  - MALAISE [None]
  - MENTAL STATUS CHANGES [None]
  - TREMOR [None]
